FAERS Safety Report 17016472 (Version 4)
Quarter: 2019Q4

REPORT INFORMATION
  Report Type: Spontaneous
  Country: US (occurrence: US)
  Receive Date: 20191111
  Receipt Date: 20191223
  Transmission Date: 20200122
  Serious: Yes (Other)
  Sender: FDA-Public Use
  Company Number: US-PFIZER INC-2019482587

PATIENT
  Age: 81 Year
  Sex: Male
  Weight: 79 kg

DRUGS (3)
  1. CELEBREX [Suspect]
     Active Substance: CELECOXIB
     Indication: ARTHRITIS
     Dosage: 200 MG, ONCE A DAY
     Route: 048
     Dates: end: 201811
  2. TYLENOL ARTHRITIS PAIN [Concomitant]
     Active Substance: ACETAMINOPHEN
     Indication: ARTHRITIS
     Dosage: 650 MG, ONCE A DAY
  3. OCUVITE [ASCORBIC ACID;RETINOL;TOCOPHEROL] [Concomitant]
     Indication: EYE DISORDER
     Dosage: UNK UNK, 1X/DAY [CAPSULE THAT CAN BE CRUSHED; ONCE A DAY]

REACTIONS (8)
  - Speech disorder [Unknown]
  - Dysphagia [Unknown]
  - Tongue paralysis [Unknown]
  - Weight decreased [Unknown]
  - Haemorrhage intracranial [Recovered/Resolved]
  - Craniocerebral injury [Unknown]
  - Road traffic accident [Unknown]
  - Concussion [Unknown]

NARRATIVE: CASE EVENT DATE: 20181120
